FAERS Safety Report 5538318-1 (Version None)
Quarter: 2007Q4

REPORT INFORMATION
  Report Type: 
  Country: None (occurrence: None)
  Receive Date: 20071205
  Receipt Date: 20071120
  Transmission Date: 20080405
  Serious: Yes (Hospitalization)
  Sender: FDA-Public Use
  Company Number: 2007002094

PATIENT
  Age: 78 Year
  Sex: Male

DRUGS (7)
  1. ERLOTINIB (TABLET) [Suspect]
     Indication: HEPATIC NEOPLASM MALIGNANT NON-RESECTABLE
     Dosage: 150 MG, QD, ORAL
     Route: 048
     Dates: start: 20071022
  2. BEVACIZUMAB (INJECTION FOR INFUSION) [Suspect]
     Dosage: 10 MG/KG, Q2W, INTRAENOUS
     Route: 042
     Dates: start: 20071003
  3. LISINOPRIL [Concomitant]
  4. LOSARTAN POTASSIUM [Concomitant]
  5. SLOW-MAG (MAGNESIUM CHLORIDE ANHYDROUS) [Concomitant]
  6. NADOLOL [Concomitant]
  7. NEXIUM [Concomitant]

REACTIONS (2)
  - ATRIAL FIBRILLATION [None]
  - HYPERTENSION [None]
